FAERS Safety Report 22744929 (Version 2)
Quarter: 2024Q2

REPORT INFORMATION
  Report Type: Spontaneous
  Country: FR (occurrence: FR)
  Receive Date: 20230725
  Receipt Date: 20240614
  Transmission Date: 20240716
  Serious: Yes (Other)
  Sender: FDA-Public Use
  Company Number: FR-AMGEN-FRASP2023125985

PATIENT

DRUGS (3)
  1. CINACALCET HYDROCHLORIDE [Suspect]
     Active Substance: CINACALCET HYDROCHLORIDE
     Indication: Hyperparathyroidism secondary
     Dosage: 0.4 (0.2-0.8) MILLIGRAM/KILOGRAM, QD (INITIAL DOSE)
     Route: 065
  2. CINACALCET HYDROCHLORIDE [Suspect]
     Active Substance: CINACALCET HYDROCHLORIDE
     Dosage: 1.0 (0.4-1.2) MILLIGRAM/KILOGRAM, QD (MAXIMAL DOSE)
     Route: 065
  3. CINACALCET HYDROCHLORIDE [Suspect]
     Active Substance: CINACALCET HYDROCHLORIDE
     Dosage: 1.1 (0.6-1.2) MILLIGRAM/KILOGRAM, QD (MAXIMAL DOSE)
     Route: 065

REACTIONS (4)
  - Traumatic fracture [Unknown]
  - Hypocalcaemia [Unknown]
  - Brown tumour [Unknown]
  - Off label use [Unknown]
